FAERS Safety Report 13037633 (Version 2)
Quarter: 2016Q4

REPORT INFORMATION
  Report Type: Spontaneous
  Country: US (occurrence: US)
  Receive Date: 20161217
  Receipt Date: 20161227
  Transmission Date: 20170207
  Serious: No
  Sender: FDA-Public Use
  Company Number: US-B.I. PHARMACEUTICALS,INC./RIDGEFIELD-2016-BI-085138

PATIENT
  Age: 76 Year
  Sex: Female

DRUGS (5)
  1. GABAPENTIN. [Concomitant]
     Active Substance: GABAPENTIN
     Indication: PAIN IN EXTREMITY
     Dosage: FORMULATION: CAPSULE;
     Route: 048
  2. JARDIANCE [Suspect]
     Active Substance: EMPAGLIFLOZIN
     Indication: TYPE 2 DIABETES MELLITUS
     Dosage: ONE TABLET ONCE DAILY;  FORM STRENGTH: 10 MG; FORMULATION: TABLET? ADMINISTRATION CORRECT? YES ?ACTI
     Route: 048
  3. TRAJENTA [Suspect]
     Active Substance: LINAGLIPTIN
     Indication: TYPE 2 DIABETES MELLITUS
     Dosage: ONE TABLET ONCE DAILY;  FORM STRENGTH: 5 MG; FORMULATION: TABLET? ADMINISTRATION CORRECT? YES ?ACTIO
     Route: 048
  4. LOSARTAN. [Concomitant]
     Active Substance: LOSARTAN
     Indication: HYPERTENSION
     Dosage: FORMULATION: TABLET;
     Route: 048
  5. PANTOPRAZOLE [Concomitant]
     Active Substance: PANTOPRAZOLE SODIUM
     Indication: HIATUS HERNIA
     Dosage: FORMULATION: TABLET;
     Route: 048

REACTIONS (4)
  - Nasopharyngitis [Not Recovered/Not Resolved]
  - Cough [Recovered/Resolved]
  - Gait disturbance [Not Recovered/Not Resolved]
  - Dysphonia [Not Recovered/Not Resolved]

NARRATIVE: CASE EVENT DATE: 201609
